FAERS Safety Report 5109725-6 (Version None)
Quarter: 2006Q3

REPORT INFORMATION
  Report Type: 
  Country: None (occurrence: None)
  Receive Date: 20060918
  Receipt Date: 20060622
  Transmission Date: 20061208
  Serious: Yes (Other)
  Sender: FDA-Public Use
  Company Number: 2006-06-1790

PATIENT
  Age: 27 Year
  Sex: Female
  Weight: 65.7716 kg

DRUGS (1)
  1. AERIUS (DESLORATADINE) (DESLORATADINE) [Suspect]
     Indication: HYPERSENSITIVITY
     Dosage: QD; PO
     Route: 048
     Dates: start: 20060622, end: 20060622

REACTIONS (3)
  - ABORTION SPONTANEOUS [None]
  - DRUG EXPOSURE DURING PREGNANCY [None]
  - PREGNANCY [None]
